FAERS Safety Report 22063154 (Version 1)
Quarter: 2023Q1

REPORT INFORMATION
  Report Type: Spontaneous
  Country: ES (occurrence: ES)
  Receive Date: 20230306
  Receipt Date: 20230306
  Transmission Date: 20230417
  Serious: Yes (Life-Threatening, Hospitalization)
  Sender: FDA-Public Use
  Company Number: ES-STRIDES ARCOLAB LIMITED-2023SP003227

PATIENT
  Age: 66 Year
  Sex: Male

DRUGS (14)
  1. DEXAMETHASONE [Suspect]
     Active Substance: DEXAMETHASONE
     Indication: Product used for unknown indication
     Dosage: 4 MILLIGRAM, EVERY 24 HOUR
     Route: 065
  2. METOCLOPRAMIDE [Suspect]
     Active Substance: METOCLOPRAMIDE
     Indication: Vomiting
     Dosage: 10 MILLIGRAM, EVERY 8 HOURS
     Route: 065
  3. OMEPRAZOLE [Suspect]
     Active Substance: OMEPRAZOLE
     Indication: Abdominal pain upper
     Dosage: 40 MILLIGRAM, EVERY 24 HOURS
     Route: 065
  4. DILTIAZEM [Suspect]
     Active Substance: DILTIAZEM
     Indication: Hypertension
     Dosage: 60 MILLIGRAM
     Route: 065
  5. FENOFIBRATE [Suspect]
     Active Substance: FENOFIBRATE
     Indication: Dyslipidaemia
     Dosage: UNK
     Route: 065
  6. FENOFIBRATE [Suspect]
     Active Substance: FENOFIBRATE
     Dosage: 160 MILLIGRAM, EVERY 24 HOUR
     Route: 065
  7. EZETIMIBE [Suspect]
     Active Substance: EZETIMIBE
     Indication: Dyslipidaemia
     Dosage: UNK
     Route: 065
  8. EZETIMIBE [Suspect]
     Active Substance: EZETIMIBE
     Dosage: 10 MILLIGRAM, EVERY 24 HOUR
     Route: 065
  9. BISOPROLOL [Suspect]
     Active Substance: BISOPROLOL
     Indication: Atrial flutter
     Dosage: 5 MILLIGRAM
     Route: 065
  10. BISOPROLOL [Suspect]
     Active Substance: BISOPROLOL
     Dosage: 2.5 MILLIGRAM, EVERY 12 HRS
     Route: 065
  11. AMIODARONE [Suspect]
     Active Substance: AMIODARONE
     Indication: Atrial flutter
     Dosage: 1200 MILLIGRAM, EVERY 24 HOUR (CONTINUOUS IV INFUSION)
     Route: 065
  12. AMIODARONE [Suspect]
     Active Substance: AMIODARONE
     Dosage: 2400 MILLIGRAM (WITHIN 48 HOURS OF HOSPITALISATION)
     Route: 042
  13. HYDROCHLOROTHIAZIDE\TELMISARTAN [Concomitant]
     Active Substance: HYDROCHLOROTHIAZIDE\TELMISARTAN
     Indication: Hypertension
     Dosage: UNK
     Route: 065
  14. METFORMIN\VILDAGLIPTIN [Concomitant]
     Active Substance: METFORMIN\VILDAGLIPTIN
     Indication: Type 2 diabetes mellitus
     Dosage: UNK
     Route: 065

REACTIONS (2)
  - Acute hepatic failure [Recovered/Resolved]
  - Drug ineffective [Unknown]
